FAERS Safety Report 9158056 (Version 1)
Quarter: 2013Q1

REPORT INFORMATION
  Report Type: Spontaneous
  Country: JP (occurrence: JP)
  Receive Date: 20130312
  Receipt Date: 20130312
  Transmission Date: 20140127
  Serious: Yes (Other)
  Sender: FDA-Public Use
  Company Number: JP-ASTRAZENECA-2013SE15752

PATIENT
  Age: 72 Year
  Sex: Female

DRUGS (1)
  1. TENORMIN [Suspect]
     Route: 048
     Dates: start: 200805, end: 201105

REACTIONS (2)
  - Sinus arrest [Unknown]
  - Sinus bradycardia [Unknown]
